FAERS Safety Report 11106867 (Version 1)
Quarter: 2015Q2

REPORT INFORMATION
  Report Type: Spontaneous
  Country: US (occurrence: None)
  Receive Date: 20150511
  Receipt Date: 20150511
  Transmission Date: 20150821
  Serious: No
  Sender: FDA-Public Use
  Company Number: None

PATIENT
  Age: 62 Year
  Sex: Female
  Weight: 57.15 kg

DRUGS (1)
  1. DEXTROAMPHETAMINE 10MG [Suspect]
     Active Substance: DEXTROAMPHETAMINE
     Route: 048
     Dates: start: 20150430

REACTIONS (1)
  - Dysphoria [None]
